FAERS Safety Report 25090368 (Version 1)
Quarter: 2025Q1

REPORT INFORMATION
  Report Type: Spontaneous
  Country: US (occurrence: US)
  Receive Date: 20250318
  Receipt Date: 20250318
  Transmission Date: 20250409
  Serious: No
  Sender: CIPLA
  Company Number: US-CIPLA LTD.-2025US00816

PATIENT

DRUGS (2)
  1. TENOFOVIR [Suspect]
     Active Substance: TENOFOVIR
     Indication: Antiretroviral therapy
     Route: 048
     Dates: start: 2023
  2. DOLUTEGRAVIR SODIUM\LAMIVUDINE [Suspect]
     Active Substance: DOLUTEGRAVIR SODIUM\LAMIVUDINE
     Indication: Antiretroviral therapy
     Route: 048
     Dates: start: 2023

REACTIONS (2)
  - Exposure during pregnancy [Unknown]
  - No adverse event [Unknown]

NARRATIVE: CASE EVENT DATE: 20230101
